FAERS Safety Report 6773065-X (Version None)
Quarter: 2010Q2

REPORT INFORMATION
  Report Type: 
  Country: None (occurrence: None)
  Receive Date: 20100616
  Receipt Date: 20100608
  Transmission Date: 20101027
  Serious: Yes (Hospitalization)
  Sender: FDA-Public Use
  Company Number: DE-PFIZER INC-2010000263

PATIENT
  Age: 66 Year
  Sex: Male
  Weight: 64 kg

DRUGS (7)
  1. SUNITINIB MALATE [Suspect]
     Indication: HEPATIC NEOPLASM MALIGNANT
     Dosage: 37.5 MG, 1X/DAY
     Route: 048
     Dates: start: 20091001, end: 20091216
  2. PANTOPRAZOL [Concomitant]
     Dosage: 40 MG, 1X/DAY
     Route: 048
  3. PROPRANOLOL [Concomitant]
     Dosage: 10 MG, 2X/DAY
     Route: 048
  4. LEVOTHYROXINE [Concomitant]
     Dosage: 100 UG, 1X1/2 DAILY
     Route: 048
  5. FUROSEMID [Concomitant]
     Dosage: 40 MG, 2X/DAY
     Route: 048
  6. SPIRONOLACTONE [Concomitant]
     Dosage: 50 MG, 2X/DAY
     Route: 048
  7. PROTAPHAN [Concomitant]
     Route: 058

REACTIONS (2)
  - ASCITES [None]
  - OEDEMA PERIPHERAL [None]
